FAERS Safety Report 10637970 (Version 1)
Quarter: 2014Q4

REPORT INFORMATION
  Report Type: Spontaneous
  Country: DE (occurrence: DE)
  Receive Date: 20141208
  Receipt Date: 20141208
  Transmission Date: 20150529
  Serious: Yes (Hospitalization)
  Sender: FDA-Public Use
  Company Number: GXKR2014DE004260

PATIENT

DRUGS (2)
  1. SALBUHEXAL [Suspect]
     Active Substance: ALBUTEROL
     Dosage: UNK MG, UNK
  2. ATROVENT [Suspect]
     Active Substance: IPRATROPIUM BROMIDE

REACTIONS (3)
  - Lung disorder [Unknown]
  - Fall [Unknown]
  - Lumbar vertebral fracture [Unknown]

NARRATIVE: CASE EVENT DATE: 201411
